FAERS Safety Report 5833234-X (Version None)
Quarter: 2008Q3

REPORT INFORMATION
  Report Type: 
  Country: None (occurrence: None)
  Receive Date: 20080801
  Receipt Date: 20080717
  Transmission Date: 20090109
  Serious: Yes (Hospitalization)
  Sender: FDA-Public Use
  Company Number: 15071

PATIENT
  Sex: Male

DRUGS (6)
  1. MORPHINE SULFATE [Suspect]
     Indication: PAIN
     Dosage: 60 MG BID ORALLY
     Route: 048
     Dates: start: 20060101
  2. MORPHINE [Concomitant]
  3. CYMBALTA [Concomitant]
  4. LEVOTHYROXINE SODIUM [Concomitant]
  5. ATRIPLA [Concomitant]
  6. MULTI-VITAMINS [Concomitant]

REACTIONS (9)
  - CONTUSION [None]
  - FALL [None]
  - INFECTION [None]
  - LOSS OF CONSCIOUSNESS [None]
  - OEDEMA PERIPHERAL [None]
  - PAIN IN EXTREMITY [None]
  - PALPITATIONS [None]
  - PHARMACEUTICAL PRODUCT COMPLAINT [None]
  - VOMITING [None]
